FAERS Safety Report 9421319 (Version 1)
Quarter: 2013Q3

REPORT INFORMATION
  Report Type: Spontaneous
  Country: US (occurrence: US)
  Receive Date: 20130725
  Receipt Date: 20130725
  Transmission Date: 20140515
  Serious: Yes (Hospitalization, Other)
  Sender: FDA-Public Use
  Company Number: US-BAXTER-2013BAX025821

PATIENT
  Age: 57 Year
  Sex: Male

DRUGS (1)
  1. DIANEAL LOW CALCIUM [Suspect]
     Indication: PERITONEAL DIALYSIS
     Route: 033
     Dates: start: 201108

REACTIONS (4)
  - Acute pulmonary oedema [Recovered/Resolved]
  - Acute respiratory failure [Unknown]
  - Hypertensive crisis [Unknown]
  - Peritoneal dialysis complication [Not Recovered/Not Resolved]
